FAERS Safety Report 6749242-0 (Version None)
Quarter: 2010Q2

REPORT INFORMATION
  Report Type: 
  Country: None (occurrence: None)
  Receive Date: 20100601
  Receipt Date: 20100521
  Transmission Date: 20101027
  Serious: Yes (Hospitalization)
  Sender: FDA-Public Use
  Company Number: JP-ASTRAZENECA-2010SE21653

PATIENT
  Age: 78 Year
  Sex: Male

DRUGS (2)
  1. CASODEX [Suspect]
     Route: 048
     Dates: start: 20100309, end: 20100327
  2. ZOLADEX [Suspect]
     Dosage: 10.8  MG / 12 WEEKS
     Route: 058
     Dates: start: 20100323

REACTIONS (1)
  - INTERSTITIAL LUNG DISEASE [None]
